APPROVED DRUG PRODUCT: METHYLPREDNISOLONE SODIUM SUCCINATE
Active Ingredient: METHYLPREDNISOLONE SODIUM SUCCINATE
Strength: EQ 40MG BASE/VIAL
Dosage Form/Route: INJECTABLE;INJECTION
Application: A086953 | Product #001
Applicant: WATSON LABORATORIES INC
Approved: Jul 22, 1982 | RLD: No | RS: No | Type: DISCN